FAERS Safety Report 7110685-7 (Version None)
Quarter: 2010Q4

REPORT INFORMATION
  Report Type: 
  Country: None (occurrence: None)
  Receive Date: 20101118
  Receipt Date: 20101116
  Transmission Date: 20110411
  Serious: Yes (Life-Threatening, Hospitalization, Disabling)
  Sender: FDA-Public Use
  Company Number: A0858762A

PATIENT
  Age: 39 Year
  Sex: Female
  Weight: 97.7 kg

DRUGS (5)
  1. TAGAMET [Suspect]
     Indication: LATEX ALLERGY
     Dosage: 400MG PER DAY
     Route: 042
     Dates: start: 20100101, end: 20100421
  2. SOLU-MEDROL [Suspect]
     Indication: LATEX ALLERGY
     Dosage: 1INJ SINGLE DOSE
     Dates: start: 20100101, end: 20100421
  3. EPINEPHRINE [Suspect]
     Indication: LATEX ALLERGY
     Route: 058
     Dates: start: 20100101, end: 20100421
  4. BENADRYL [Suspect]
     Indication: LATEX ALLERGY
     Dosage: 50MG SINGLE DOSE
     Route: 042
     Dates: start: 20100101, end: 20100421
  5. TOPAMAX [Concomitant]
     Indication: MIGRAINE

REACTIONS (11)
  - ANGIOEDEMA [None]
  - BLOOD POTASSIUM DECREASED [None]
  - DEHYDRATION [None]
  - DYSPNOEA [None]
  - HYPERSENSITIVITY [None]
  - LATEX ALLERGY [None]
  - NAUSEA [None]
  - PHARYNGEAL OEDEMA [None]
  - RASH [None]
  - RESPIRATORY DISORDER [None]
  - VOMITING [None]
